FAERS Safety Report 5124855-0 (Version None)
Quarter: 2006Q4

REPORT INFORMATION
  Report Type: 
  Country: None (occurrence: None)
  Receive Date: 20061011
  Receipt Date: 20061003
  Transmission Date: 20070319
  Serious: Yes (Hospitalization)
  Sender: FDA-Public Use
  Company Number: HU-ROCHE-465899

PATIENT
  Age: 15 Year
  Sex: Female
  Weight: 44 kg

DRUGS (1)
  1. ROACCUTAN [Suspect]
     Indication: ACNE
     Dosage: DOSAGE REGIMEN REPORTED AS 2 X 10 MG.
     Route: 048
     Dates: start: 20060822, end: 20060928

REACTIONS (4)
  - BALANCE DISORDER [None]
  - INTRACRANIAL PRESSURE INCREASED [None]
  - MUSCULAR WEAKNESS [None]
  - PARAESTHESIA [None]
